FAERS Safety Report 24414787 (Version 1)
Quarter: 2024Q4

REPORT INFORMATION
  Report Type: Spontaneous
  Country: US (occurrence: US)
  Receive Date: 20241009
  Receipt Date: 20241009
  Transmission Date: 20250115
  Serious: No
  Sender: ALK-ABELLO
  Company Number: US-ALK-ABELLO A/S-2024AA003516

PATIENT

DRUGS (8)
  1. CARYA ILLINOINENSIS POLLEN [Suspect]
     Active Substance: CARYA ILLINOINENSIS POLLEN
     Indication: Diagnostic procedure
  2. CETIRIZINE [Concomitant]
     Active Substance: CETIRIZINE HYDROCHLORIDE
     Indication: Product used for unknown indication
     Dosage: 5 MILLILITER (1 MG/ML ORAL SOLUTION)
     Route: 048
     Dates: start: 20240812
  3. DIPHENHYDRAMINE [Concomitant]
     Active Substance: DIPHENHYDRAMINE
     Indication: Product used for unknown indication
     Dosage: 10 MILLILITER (12.5 MG/5 ML ORAL LIQUID)
     Route: 048
     Dates: start: 20240812
  4. DAE BULK 764 [Concomitant]
  5. DAE BULK 765 [Concomitant]
  6. DAE BULK 763 [Concomitant]
  7. DAE BULK 766 [Concomitant]
  8. PISTACHIO NUT [Concomitant]
     Active Substance: PISTACHIO

REACTIONS (1)
  - False negative investigation result [Unknown]
